FAERS Safety Report 8573389-X (Version None)
Quarter: 2012Q3

REPORT INFORMATION
  Report Type: 
  Country: None (occurrence: None)
  Receive Date: 20120806
  Receipt Date: 20120725
  Transmission Date: 20120928
  Serious: Yes (Death)
  Sender: FDA-Public Use
  Company Number: FR-BRISTOL-MYERS SQUIBB COMPANY-16806127

PATIENT
  Sex: Male

DRUGS (3)
  1. REYATAZ [Suspect]
     Route: 064
     Dates: start: 20120124
  2. TRUVADA [Suspect]
     Route: 064
     Dates: start: 20110124
  3. NORVIR [Suspect]
     Dosage: 1 FILM COATED TABLET DAILY
     Route: 064
     Dates: start: 20120124

REACTIONS (7)
  - EAGLE BARRETT SYNDROME [None]
  - INTESTINAL MALROTATION [None]
  - BLADDER DILATATION [None]
  - PERSISTENT CLOACA [None]
  - ANAL ATRESIA [None]
  - DYSMORPHISM [None]
  - RENAL APLASIA [None]
